FAERS Safety Report 5060294-9 (Version None)
Quarter: 2006Q3

REPORT INFORMATION
  Report Type: 
  Country: None (occurrence: None)
  Receive Date: 20060720
  Receipt Date: 20060706
  Transmission Date: 20061208
  Serious: Yes (Hospitalization)
  Sender: FDA-Public Use
  Company Number: 2005-00347

PATIENT
  Age: 46 Year
  Sex: Female
  Weight: 114.5 kg

DRUGS (1)
  1. VELCADE [Suspect]
     Indication: MULTIPLE MYELOMA
     Dosage: 2.09 MG, INTRAVENOUS
     Route: 042
     Dates: start: 20050110, end: 20050210

REACTIONS (12)
  - BACK PAIN [None]
  - BEDRIDDEN [None]
  - DISEASE PROGRESSION [None]
  - HYDRONEPHROSIS [None]
  - HYPOXIA [None]
  - LYMPHADENOPATHY MEDIASTINAL [None]
  - METASTASES TO LYMPH NODES [None]
  - METASTASES TO RETROPERITONEUM [None]
  - PLEURAL EFFUSION [None]
  - RENAL DISORDER [None]
  - RENAL FAILURE ACUTE [None]
  - URETERIC OBSTRUCTION [None]
